FAERS Safety Report 20833782 (Version 1)
Quarter: 2022Q2

REPORT INFORMATION
  Report Type: Spontaneous
  Country: GB (occurrence: GB)
  Receive Date: 20220516
  Receipt Date: 20220516
  Transmission Date: 20220721
  Serious: Yes (Life-Threatening, Hospitalization, Disabling, Congenital Anomaly, Other)
  Sender: FDA-Public Use
  Company Number: GB-MHRA-MED-202205141859295900-KAEG6

PATIENT

DRUGS (1)
  1. IBUPROFEN [Suspect]
     Active Substance: IBUPROFEN
     Indication: Migraine
     Dosage: 600 MG, TID

REACTIONS (3)
  - Mental disorder [Not Recovered/Not Resolved]
  - Neoplasm malignant [Recovered/Resolved]
  - Autoimmune disorder [Recovered/Resolved]
